FAERS Safety Report 5584730-4 (Version None)
Quarter: 2008Q2

REPORT INFORMATION
  Report Type: 
  Country: None (occurrence: None)
  Receive Date: 20080103
  Receipt Date: 20071220
  Transmission Date: 20081010
  Serious: Yes (Death, Hospitalization)
  Sender: FDA-Public Use
  Company Number: 2007-01724

PATIENT
  Age: 78 Year
  Sex: Female
  Weight: 53 kg

DRUGS (14)
  1. VELCADE [Suspect]
     Indication: MULTIPLE MYELOMA
     Dosage: 1.90 MG, 1.70 MG , 1.30 MG, 1.90 MG INTRAVENOUS
     Route: 042
     Dates: start: 20070109, end: 20070109
  2. VELCADE [Suspect]
     Indication: MULTIPLE MYELOMA
     Dosage: 1.90 MG, 1.70 MG , 1.30 MG, 1.90 MG INTRAVENOUS
     Route: 042
     Dates: start: 20070112, end: 20070112
  3. VELCADE [Suspect]
     Indication: MULTIPLE MYELOMA
     Dosage: 1.90 MG, 1.70 MG , 1.30 MG, 1.90 MG INTRAVENOUS
     Route: 042
     Dates: start: 20070130, end: 20070202
  4. VELCADE [Suspect]
     Indication: MULTIPLE MYELOMA
     Dosage: 1.90 MG, 1.70 MG , 1.30 MG, 1.90 MG INTRAVENOUS
     Route: 042
     Dates: start: 20070213, end: 20070323
  5. PREDNISOLONE [Concomitant]
  6. HYDROCORTISONE [Concomitant]
  7. WARFARIN SODIUM [Concomitant]
  8. ACECOL (TEMOCAPRIL HYDROCHLORIDE) [Concomitant]
  9. ENDOXAN [Concomitant]
  10. RED BLOOD CELLS [Concomitant]
  11. DIFLUCAN [Concomitant]
  12. SELBEX (TEPRENONE) [Concomitant]
  13. NIVADIL (NILVADIPINE) [Concomitant]
  14. LANIRAPID (METILDIGOXIN) [Concomitant]

REACTIONS (9)
  - CARDIAC FAILURE [None]
  - DIARRHOEA [None]
  - MALIGNANT NEOPLASM PROGRESSION [None]
  - NAUSEA [None]
  - OEDEMA [None]
  - PLATELET COUNT DECREASED [None]
  - PULMONARY OEDEMA [None]
  - PYREXIA [None]
  - WHITE BLOOD CELL COUNT DECREASED [None]
